FAERS Safety Report 16811066 (Version 1)
Quarter: 2019Q3

REPORT INFORMATION
  Report Type: Spontaneous
  Country: BR (occurrence: BR)
  Receive Date: 20190916
  Receipt Date: 20190916
  Transmission Date: 20191005
  Serious: Yes (Hospitalization)
  Sender: FDA-Public Use
  Company Number: BR-BAXTER-2019BAX017760

PATIENT
  Age: 35 Year
  Sex: Male

DRUGS (3)
  1. FLOSEAL [Suspect]
     Active Substance: THROMBIN
     Indication: TISSUE SEALING
     Route: 065
     Dates: start: 20190904
  2. ROPIVACAINE. [Suspect]
     Active Substance: ROPIVACAINE HYDROCHLORIDE
     Indication: INFILTRATION ANAESTHESIA
     Route: 065
     Dates: start: 20190904
  3. ADRENALINE [Suspect]
     Active Substance: EPINEPHRINE
     Indication: INFILTRATION ANAESTHESIA
     Dosage: STRENGTH: 1/100,000
     Route: 065
     Dates: start: 20190904

REACTIONS (2)
  - Hyperhidrosis [Recovering/Resolving]
  - Tachycardia [Recovering/Resolving]

NARRATIVE: CASE EVENT DATE: 20190904
